FAERS Safety Report 16687886 (Version 7)
Quarter: 2021Q4

REPORT INFORMATION
  Report Type: Report from Study
  Country: BR (occurrence: BR)
  Receive Date: 20190809
  Receipt Date: 20211110
  Transmission Date: 20220303
  Serious: Yes (Hospitalization, Other)
  Sender: FDA-Public Use
  Company Number: BR-AMERICAN REGENT INC-2019001680

PATIENT
  Sex: Female
  Weight: 58 kg

DRUGS (11)
  1. VENOFER [Suspect]
     Active Substance: IRON SUCROSE
     Indication: Anaemia
     Dosage: UNK
     Route: 042
     Dates: start: 20190503, end: 201906
  2. IRON POLYMALTOSE [Suspect]
     Active Substance: IRON POLYMALTOSE
     Indication: Anaemia
     Dosage: 1 TABLET (100 MG, 3 IN 1 D)
     Route: 048
     Dates: start: 2019, end: 201906
  3. ENTYVIO [Suspect]
     Active Substance: VEDOLIZUMAB
     Indication: Crohn^s disease
     Dosage: 0, 2, 6/ EVERY 8 WEEKS AND THEN EVERY 6 WEEKS (300 MG)
     Dates: start: 20190503
  4. ENTYVIO [Suspect]
     Active Substance: VEDOLIZUMAB
     Dosage: 300 MILLIGRAM
     Dates: start: 201905
  5. ENTYVIO [Suspect]
     Active Substance: VEDOLIZUMAB
     Dosage: 300 MILLIGRAM
     Dates: start: 201906
  6. ENTYVIO [Suspect]
     Active Substance: VEDOLIZUMAB
     Dosage: 300 MG, 1 IN 6 WK
     Dates: start: 201909
  7. EXJADE [Suspect]
     Active Substance: DEFERASIROX
     Indication: Liver iron concentration abnormal
     Dosage: DAILY/NOT ALL DAYS (500 MG)
     Route: 065
     Dates: start: 201906, end: 201909
  8. CARBOHYDRATES\FATTY ACIDS\MINERALS\PROTEIN\VITAMINS [Concomitant]
     Active Substance: CARBOHYDRATES\FATTY ACIDS\MINERALS\PROTEIN\VITAMINS
     Indication: Crohn^s disease
     Dosage: UNK, ^APPROXIMATELY 6 MONTHS AGO^- ^MUCH BETTER SINCE THEN^
     Route: 065
     Dates: start: 2019
  9. EUTHYROX [Concomitant]
     Active Substance: LEVOTHYROXINE SODIUM
     Indication: Thyroid disorder
     Dosage: UNK
     Route: 065
  10. VITAMIN C [Concomitant]
     Active Substance: ASCORBIC ACID
     Indication: Metabolic surgery
     Dosage: UNK
     Route: 065
  11. BUPROPION [Concomitant]
     Active Substance: BUPROPION
     Indication: Anxiety
     Dosage: 150 MILLIGRAM
     Route: 065

REACTIONS (22)
  - Influenza like illness [Recovered/Resolved]
  - Asthenia [Recovered/Resolved]
  - Inflammatory bowel disease [Unknown]
  - Crohn^s disease [Unknown]
  - Dental caries [Not Recovered/Not Resolved]
  - Condition aggravated [Not Recovered/Not Resolved]
  - Cholelithiasis [Not Recovered/Not Resolved]
  - Abdominal pain [Not Recovered/Not Resolved]
  - Liver iron concentration abnormal [Recovering/Resolving]
  - Aphthous ulcer [Recovered/Resolved]
  - Flatulence [Unknown]
  - Weight increased [Recovered/Resolved]
  - Nail disorder [Recovered/Resolved]
  - Alopecia [Recovered/Resolved]
  - Enteritis [Unknown]
  - Hyperaesthesia teeth [Not Recovered/Not Resolved]
  - Abdominal pain [Recovered/Resolved]
  - Abdominal discomfort [Recovered/Resolved]
  - Diarrhoea [Unknown]
  - Dizziness [Recovered/Resolved]
  - Nausea [Recovered/Resolved]
  - Abdominal pain [Recovered/Resolved]

NARRATIVE: CASE EVENT DATE: 20190101
